FAERS Safety Report 9184077 (Version 1)
Quarter: 2013Q1

REPORT INFORMATION
  Report Type: Spontaneous
  Country: US (occurrence: US)
  Receive Date: 20130322
  Receipt Date: 20130322
  Transmission Date: 20140127
  Serious: Yes (Life-Threatening)
  Sender: FDA-Public Use
  Company Number: US-BRISTOL-MYERS SQUIBB COMPANY-16723553

PATIENT
  Age: 65 Year
  Sex: Male

DRUGS (5)
  1. ERBITUX SOLN FOR INF [Suspect]
     Indication: COLON CANCER
     Dosage: INFUSION, RECEIVED 35 ML
     Route: 042
     Dates: start: 20120531, end: 20120531
  2. TRICOR [Concomitant]
     Dosage: LONG TERM MEDICATION
  3. ATENOLOL [Concomitant]
     Dosage: LONG TERM MEDICATION
  4. LORTAB [Concomitant]
     Dosage: LONG TERM MEDICATION
  5. ENALAPRIL [Concomitant]
     Dosage: LONG TERM MEDICATION

REACTIONS (1)
  - Anaphylactic reaction [Recovered/Resolved]
